FAERS Safety Report 7692788-1 (Version None)
Quarter: 2011Q3

REPORT INFORMATION
  Report Type: 
  Country: None (occurrence: None)
  Receive Date: 20110819
  Receipt Date: 20110809
  Transmission Date: 20111222
  Serious: Yes (Other)
  Sender: FDA-Public Use
  Company Number: NL-JNJFOC-20100809239

PATIENT
  Sex: Female

DRUGS (2)
  1. REMICADE [Suspect]
     Indication: RHEUMATOID ARTHRITIS
     Route: 042
     Dates: start: 20100826
  2. REMICADE [Suspect]
     Route: 042

REACTIONS (4)
  - DYSPNOEA [None]
  - RESPIRATORY DISTRESS [None]
  - HEADACHE [None]
  - INFUSION RELATED REACTION [None]
